FAERS Safety Report 9659894 (Version 1)
Quarter: 2013Q4

REPORT INFORMATION
  Report Type: Spontaneous
  Country: JP (occurrence: JP)
  Receive Date: 20131031
  Receipt Date: 20131031
  Transmission Date: 20140711
  Serious: Yes (Other)
  Sender: FDA-Public Use
  Company Number: JP-ROCHE-1293840

PATIENT
  Sex: Female

DRUGS (1)
  1. ACTEMRA [Suspect]
     Indication: PRODUCT USED FOR UNKNOWN INDICATION
     Dosage: DOSAGE IS UNCERTAIN.
     Route: 065

REACTIONS (7)
  - Road traffic accident [Unknown]
  - Breast cancer [Unknown]
  - Enterocolitis [Unknown]
  - Gastritis atrophic [Unknown]
  - Weight gain poor [Unknown]
  - Oropharyngeal pain [Unknown]
  - Abdominal distension [Unknown]
